FAERS Safety Report 21147694 (Version 1)
Quarter: 2022Q3

REPORT INFORMATION
  Report Type: Spontaneous
  Country: US (occurrence: None)
  Receive Date: 20220728
  Receipt Date: 20220728
  Transmission Date: 20221026
  Serious: Yes (Life-Threatening, Disabling)
  Sender: FDA-Public Use
  Company Number: None

PATIENT
  Age: 27 Year
  Sex: Male
  Weight: 65.25 kg

DRUGS (1)
  1. DESVENLAFAXINE SUCCINATE [Suspect]
     Active Substance: DESVENLAFAXINE SUCCINATE
     Indication: Depression
     Dosage: OTHER QUANTITY : 1 TABLET(S);?
     Route: 048
     Dates: start: 20210301, end: 20210324

REACTIONS (10)
  - Tinnitus [None]
  - Tinnitus [None]
  - Insomnia [None]
  - Disturbance in attention [None]
  - Depression [None]
  - Anxiety [None]
  - Nervous system disorder [None]
  - Suicidal ideation [None]
  - Hearing disability [None]
  - Hyperacusis [None]

NARRATIVE: CASE EVENT DATE: 20210321
